FAERS Safety Report 10733841 (Version 2)
Quarter: 2015Q1

REPORT INFORMATION
  Report Type: Report from Study
  Country: US (occurrence: US)
  Receive Date: 20150123
  Receipt Date: 20150202
  Transmission Date: 20150721
  Serious: Yes (Hospitalization)
  Sender: FDA-Public Use
  Company Number: US-ACTELION-A-US2015-111317

PATIENT
  Age: 11 Month
  Sex: Male

DRUGS (5)
  1. OMEPRAZOLE. [Concomitant]
     Active Substance: OMEPRAZOLE
     Dosage: 2 MG, BID
  2. FLOVENT [Concomitant]
     Active Substance: FLUTICASONE PROPIONATE
     Dosage: 2 PUFF, BID
  3. TRACLEER [Suspect]
     Active Substance: BOSENTAN\BOSENTAN MONOHYDRATE
     Indication: COR PULMONALE CHRONIC
     Dosage: 10.4 MG, BID
     Route: 048
     Dates: start: 20141013
  4. ALBUTEROL. [Concomitant]
     Active Substance: ALBUTEROL
     Dosage: 2 PUFF, Q4HRS
  5. SILDENAFIL. [Concomitant]
     Active Substance: SILDENAFIL
     Dosage: 4 ML, UNK
     Dates: start: 20140829

REACTIONS (2)
  - Orchidopexy [Unknown]
  - Gastrointestinal tube insertion [Unknown]
